FAERS Safety Report 6304689-1 (Version None)
Quarter: 2009Q3

REPORT INFORMATION
  Report Type: 
  Country: None (occurrence: None)
  Receive Date: 20090811
  Receipt Date: 20090807
  Transmission Date: 20100115
  Serious: Yes (Life-Threatening, Hospitalization)
  Sender: FDA-Public Use
  Company Number: FI-ASTRAZENECA-2009SE07134

PATIENT
  Age: 19 Year
  Sex: Female

DRUGS (2)
  1. SEROQUEL [Suspect]
     Indication: DEPRESSED MOOD
     Dosage: 50MG IN THE EVENING
     Route: 048
     Dates: start: 20090629, end: 20090629
  2. SEROQUEL [Suspect]
     Dosage: 25MG IN THE MORNING
     Route: 048
     Dates: start: 20090630, end: 20090630

REACTIONS (6)
  - APNOEA [None]
  - BLOOD PRESSURE IMMEASURABLE [None]
  - CONVULSION [None]
  - DIPLOPIA [None]
  - HYPOTENSION [None]
  - PULSE ABSENT [None]
